FAERS Safety Report 11221643 (Version 1)
Quarter: 2015Q2

REPORT INFORMATION
  Report Type: Spontaneous
  Country: US (occurrence: None)
  Receive Date: 20150625
  Receipt Date: 20150625
  Transmission Date: 20150821
  Serious: No
  Sender: FDA-Public Use
  Company Number: None

PATIENT
  Age: 46 Year
  Sex: Female
  Weight: 97.52 kg

DRUGS (5)
  1. CONTRAVE [Suspect]
     Active Substance: BUPROPION HYDROCHLORIDE\NALTREXONE HYDROCHLORIDE
     Indication: DIABETES MELLITUS
     Dosage: VARIED
     Route: 048
     Dates: start: 20150613, end: 20150620
  2. PROZAC [Concomitant]
     Active Substance: FLUOXETINE HYDROCHLORIDE
  3. SIMVASTATIN. [Concomitant]
     Active Substance: SIMVASTATIN
  4. CONTRAVE [Suspect]
     Active Substance: BUPROPION HYDROCHLORIDE\NALTREXONE HYDROCHLORIDE
     Indication: WEIGHT CONTROL
     Dosage: VARIED
     Route: 048
     Dates: start: 20150613, end: 20150620
  5. LINSOPRIL [Concomitant]

REACTIONS (7)
  - Urticaria [None]
  - Blood pressure increased [None]
  - Heart rate increased [None]
  - Pruritus [None]
  - Hypersensitivity [None]
  - Rash [None]
  - Drug ineffective [None]

NARRATIVE: CASE EVENT DATE: 20150620
